FAERS Safety Report 19369947 (Version 1)
Quarter: 2021Q2

REPORT INFORMATION
  Report Type: Spontaneous
  Country: DE (occurrence: DE)
  Receive Date: 20210604
  Receipt Date: 20210604
  Transmission Date: 20210717
  Serious: Yes (Life-Threatening)
  Sender: FDA-Public Use
  Company Number: DE-ASTRAZENECA-2021A488663

PATIENT
  Sex: Female
  Weight: 65.8 kg

DRUGS (4)
  1. ESCITALOPRAM [Concomitant]
     Active Substance: ESCITALOPRAM OXALATE
     Dosage: 10
     Route: 065
  2. VAXZEVRIA [Suspect]
     Active Substance: AZD-1222
     Route: 030
  3. QUETIAPIN [Suspect]
     Active Substance: QUETIAPINE
     Indication: DEPRESSION
     Route: 048
  4. CLONAZEPAM. [Concomitant]
     Active Substance: CLONAZEPAM
     Dosage: 0.5
     Route: 065

REACTIONS (1)
  - Deep vein thrombosis [Unknown]
